FAERS Safety Report 7043588-7 (Version None)
Quarter: 2010Q4

REPORT INFORMATION
  Report Type: 
  Country: None (occurrence: None)
  Receive Date: 20101013
  Receipt Date: 20101006
  Transmission Date: 20110411
  Serious: Yes (Death)
  Sender: FDA-Public Use
  Company Number: A0886149A

PATIENT
  Age: 68 Year
  Sex: Male

DRUGS (2)
  1. ARIXTRA [Suspect]
     Indication: PRODUCT USED FOR UNKNOWN INDICATION
     Dosage: 7.5MG UNKNOWN
     Route: 058
     Dates: start: 20100326, end: 20101001
  2. ZOFRAN [Suspect]
     Indication: PRODUCT USED FOR UNKNOWN INDICATION
     Dosage: 8MG UNKNOWN
     Route: 048
     Dates: start: 20100326, end: 20101001

REACTIONS (1)
  - DEATH [None]
